FAERS Safety Report 7355128-3 (Version None)
Quarter: 2011Q1

REPORT INFORMATION
  Report Type: 
  Country: None (occurrence: None)
  Receive Date: 20110314
  Receipt Date: 20110314
  Transmission Date: 20110831
  Serious: Yes (Hospitalization, Disabling)
  Sender: FDA-Public Use
  Company Number: None

PATIENT
  Sex: Female
  Weight: 14.7 kg

DRUGS (3)
  1. MCKESSON LUBRICATING JELLY (3G) [Suspect]
     Indication: BLADDER CATHETERISATION
     Dosage: 1 PACKET - 3 GMS 4X/DAY VIA BLADDER
     Dates: start: 20100101
  2. MCKESSON LUBRICATING JELLY (4OZ) [Suspect]
     Indication: URINARY RETENTION
     Dosage: 1 PEA-SIZED AMOUNT QDAY PER RECTUM
     Dates: start: 20110201
  3. MCKESSON LUBRICATING JELLY (4OZ) [Suspect]
     Indication: GASTROOESOPHAGEAL REFLUX DISEASE
     Dosage: 1 PEA-SIZED AMOUNT QDAY PER RECTUM
     Dates: start: 20110201

REACTIONS (4)
  - URINARY TRACT INFECTION [None]
  - PANCREATITIS [None]
  - KIDNEY INFECTION [None]
  - CHOLECYSTECTOMY [None]
